FAERS Safety Report 7299566-6 (Version None)
Quarter: 2010Q4

REPORT INFORMATION
  Report Type: 
  Country: None (occurrence: None)
  Receive Date: 20101223
  Receipt Date: 20100217
  Transmission Date: 20110411
  Serious: Yes (Other)
  Sender: FDA-Public Use
  Company Number: 304540

PATIENT
  Age: 71 Year
  Sex: Male
  Weight: 99.8 kg

DRUGS (2)
  1. LEVEMIR [Suspect]
     Indication: TYPE 2 DIABETES MELLITUS
     Dosage: 53 IU, QD (AT 8 PM), SUBCUTANEOUS
     Route: 058
     Dates: start: 20090101
  2. CORTICOSTEROID NOS (CORTICOSTEROID NOS) [Concomitant]

REACTIONS (1)
  - BLOOD GLUCOSE INCREASED [None]
